FAERS Safety Report 15020436 (Version 3)
Quarter: 2018Q4

REPORT INFORMATION
  Report Type: Report from Study
  Country: CZ (occurrence: CZ)
  Receive Date: 20180618
  Receipt Date: 20181108
  Transmission Date: 20190204
  Serious: Yes (Death, Other)
  Sender: FDA-Public Use
  Company Number: CZ-B.I. PHARMACEUTICALS,INC./RIDGEFIELD-2017-BI-049158

PATIENT
  Age: 62 Year
  Sex: Male

DRUGS (2)
  1. PRAXBIND [Suspect]
     Active Substance: IDARUCIZUMAB
     Indication: PROCOAGULANT THERAPY
     Dosage: SECOND DOSE
     Route: 042
     Dates: start: 20160624, end: 20160624
  2. PRAXBIND [Suspect]
     Active Substance: IDARUCIZUMAB
     Route: 050

REACTIONS (1)
  - Aortic dissection [Fatal]
